FAERS Safety Report 6631345-2 (Version None)
Quarter: 2010Q1

REPORT INFORMATION
  Report Type: 
  Country: None (occurrence: None)
  Receive Date: 20100311
  Receipt Date: 20100311
  Transmission Date: 20100710
  Serious: Yes (Hospitalization)
  Sender: FDA-Public Use
  Company Number: None

PATIENT
  Sex: Female
  Weight: 59.02 kg

DRUGS (2)
  1. CARBOPLATIN [Suspect]
     Dosage: 690 MG
     Dates: end: 20100301
  2. TAXOL [Suspect]
     Dosage: 130 MG

REACTIONS (7)
  - ABDOMINAL PAIN UPPER [None]
  - DEHYDRATION [None]
  - GASTRITIS [None]
  - HAEMATEMESIS [None]
  - HYPOPHAGIA [None]
  - POSTOPERATIVE ILEUS [None]
  - WEIGHT DECREASED [None]
